FAERS Safety Report 6590269-X (Version None)
Quarter: 2010Q1

REPORT INFORMATION
  Report Type: 
  Country: None (occurrence: None)
  Receive Date: 20100219
  Receipt Date: 20100216
  Transmission Date: 20100710
  Serious: Yes (Other)
  Sender: FDA-Public Use
  Company Number: PHHY2010JP09026

PATIENT
  Age: 73 Year
  Sex: Male

DRUGS (6)
  1. COMTAN CMT+TAB [Suspect]
     Indication: PARKINSON'S DISEASE
     Dosage: 100 MG, DAILY
     Route: 048
     Dates: start: 20081101
  2. COMTAN CMT+TAB [Suspect]
     Dosage: 200 MG, DAILY
     Route: 048
     Dates: start: 20090501
  3. COMTAN CMT+TAB [Suspect]
     Dosage: 100 MG, DAILY
     Route: 048
  4. MADOPAR [Suspect]
     Indication: PARKINSON'S DISEASE
     Dosage: UNK
     Route: 048
     Dates: start: 20090501
  5. SELEGILINE HCL [Suspect]
     Indication: PARKINSON'S DISEASE
     Dosage: UNK
     Route: 048
  6. REQUIP [Suspect]
     Indication: PARKINSON'S DISEASE
     Dosage: UNK

REACTIONS (1)
  - HALLUCINATION, VISUAL [None]
